FAERS Safety Report 19190513 (Version 1)
Quarter: 2021Q2

REPORT INFORMATION
  Report Type: Spontaneous
  Country: US (occurrence: US)
  Receive Date: 20210428
  Receipt Date: 20210428
  Transmission Date: 20210717
  Serious: Yes (Hospitalization)
  Sender: FDA-Public Use
  Company Number: US-HIKMA PHARMACEUTICALS USA INC.-US-H14001-21-02014

PATIENT
  Age: 24 Month
  Sex: Male

DRUGS (16)
  1. UNITUXIN [Suspect]
     Active Substance: DINUTUXIMAB
     Dosage: UNKNOWN
     Route: 041
  2. DOXORUBICIN HYDROCHLORIDE. [Suspect]
     Active Substance: DOXORUBICIN HYDROCHLORIDE
     Indication: NEUROBLASTOMA
     Dosage: UNKNOWN
     Route: 065
  3. MESNA. [Suspect]
     Active Substance: MESNA
     Indication: NEUROBLASTOMA
     Dosage: UNKNOWN
     Route: 065
  4. UNITUXIN [Suspect]
     Active Substance: DINUTUXIMAB
     Indication: NEUROBLASTOMA
     Dosage: UNKNOWN
     Route: 041
  5. CISPLATIN. [Suspect]
     Active Substance: CISPLATIN
     Indication: NEUROBLASTOMA
     Dosage: UNKNOWN
     Route: 065
  6. DOXORUBICIN HYDROCHLORIDE. [Suspect]
     Active Substance: DOXORUBICIN HYDROCHLORIDE
     Dosage: UNKNOWN
     Route: 065
  7. ETOPOSIDE. [Suspect]
     Active Substance: ETOPOSIDE
     Indication: NEUROBLASTOMA
     Dosage: UNKNOWN
     Route: 065
  8. SARGRAMOSTIM [Suspect]
     Active Substance: SARGRAMOSTIM
     Indication: NEUROBLASTOMA
     Dosage: UNKNOWN
     Route: 065
  9. CYCLOPHOSPHAMIDE. [Suspect]
     Active Substance: CYCLOPHOSPHAMIDE
     Indication: NEUROBLASTOMA
     Dosage: UNKNOWN
     Route: 065
  10. UNITUXIN [Suspect]
     Active Substance: DINUTUXIMAB
     Dosage: UNKNOWN
     Route: 041
  11. UNITUXIN [Suspect]
     Active Substance: DINUTUXIMAB
     Dosage: UNKNOWN; INFUSION RATE 2.5 ML/HR
     Route: 041
  12. VINCRISTINE SULFATE. [Suspect]
     Active Substance: VINCRISTINE SULFATE
     Indication: NEUROBLASTOMA
     Dosage: UNKNOWN
     Route: 065
  13. DEXRAZOXANE. [Suspect]
     Active Substance: DEXRAZOXANE
     Indication: NEUROBLASTOMA
     Dosage: UNKNOWN
     Route: 065
  14. SARGRAMOSTIM [Suspect]
     Active Substance: SARGRAMOSTIM
     Dosage: UNKNOWN
     Route: 065
  15. CYCLOPHOSPHAMIDE. [Suspect]
     Active Substance: CYCLOPHOSPHAMIDE
     Dosage: UNKNOWN
     Route: 065
  16. VINCRISTINE SULFATE. [Suspect]
     Active Substance: VINCRISTINE SULFATE
     Dosage: UNKNOWN
     Route: 065

REACTIONS (4)
  - Pyrexia [Unknown]
  - Hypotension [Unknown]
  - Therapy partial responder [Unknown]
  - Drug hypersensitivity [Unknown]
